FAERS Safety Report 16538501 (Version 1)
Quarter: 2019Q3

REPORT INFORMATION
  Report Type: Spontaneous
  Country: US (occurrence: US)
  Receive Date: 20190524
  Receipt Date: 20190524
  Transmission Date: 20191004
  Serious: No
  Sender: FDA-Public Use
  Company Number: None

PATIENT
  Age: 64 Year
  Sex: Female

DRUGS (1)
  1. ALENDRONATE [Suspect]
     Active Substance: ALENDRONATE SODIUM
     Dates: start: 20190520, end: 20190522

REACTIONS (3)
  - Throat tightness [None]
  - Swollen tongue [None]
  - Tongue blistering [None]

NARRATIVE: CASE EVENT DATE: 20190520
